FAERS Safety Report 5434852-3 (Version None)
Quarter: 2007Q3

REPORT INFORMATION
  Report Type: 
  Country: None (occurrence: None)
  Receive Date: 20070831
  Receipt Date: 20070807
  Transmission Date: 20080115
  Serious: No
  Sender: FDA-Public Use
  Company Number: A0668278A

PATIENT
  Age: 61 Year
  Sex: Female

DRUGS (4)
  1. ALLI [Suspect]
     Dates: start: 20070729, end: 20070805
  2. PAXIL [Concomitant]
  3. CLONAZEPAM [Concomitant]
  4. BOTOX [Concomitant]

REACTIONS (2)
  - HEADACHE [None]
  - HYPERSENSITIVITY [None]
